FAERS Safety Report 15411403 (Version 3)
Quarter: 2019Q4

REPORT INFORMATION
  Report Type: Spontaneous
  Country: GB (occurrence: GB)
  Receive Date: 20180921
  Receipt Date: 20191207
  Transmission Date: 20200122
  Serious: Yes (Other)
  Sender: FDA-Public Use
  Company Number: GB-AUROBINDO-AUR-APL-2018-028408

PATIENT
  Age: 80 Year
  Sex: Female

DRUGS (1)
  1. ZOLEDRONIC ACID SOLUTION FOR INFUSION [Suspect]
     Active Substance: ZOLEDRONIC ACID
     Indication: OSTEOPOROSIS POSTMENOPAUSAL
     Dosage: 5 MILLIGRAM
     Route: 042

REACTIONS (10)
  - Conjunctival oedema [Recovered/Resolved]
  - Conjunctival hyperaemia [Recovered/Resolved]
  - Peptic ulcer [Recovered/Resolved]
  - Hypopyon [Recovered/Resolved]
  - Anterior chamber flare [Recovered/Resolved]
  - Photophobia [Recovered/Resolved]
  - Iridocyclitis [Recovered/Resolved]
  - Anterior chamber cell [Recovered/Resolved]
  - Eye pain [Recovered/Resolved]
  - Visual acuity reduced [Recovered/Resolved]
